FAERS Safety Report 18596353 (Version 1)
Quarter: 2020Q4

REPORT INFORMATION
  Report Type: Spontaneous
  Country: US (occurrence: US)
  Receive Date: 20201209
  Receipt Date: 20201209
  Transmission Date: 20210114
  Serious: No
  Sender: FDA-Public Use
  Company Number: US-LUPIN PHARMACEUTICALS INC.-2020-03641

PATIENT
  Age: 29 Year
  Sex: Female

DRUGS (3)
  1. ETONOGESTREL, ETHINYLESTRADIOL [Interacting]
     Active Substance: ETHINYL ESTRADIOL\ETONOGESTREL
     Indication: HORMONAL CONTRACEPTION
     Dosage: UNK (USED FOR THREE CONSECUTIVE WEEKS (ACTIVE PHASE) FOLLOWED BY A WEEK OFF )
     Route: 067
  2. LEVETIRACETAM. [Concomitant]
     Active Substance: LEVETIRACETAM
     Indication: EPILEPSY
     Dosage: UNK
     Route: 065
  3. LAMOTRIGINE. [Suspect]
     Active Substance: LAMOTRIGINE
     Indication: EPILEPSY
     Dosage: UNK UNK, QD ( 400MG TO 600MG/DAY)
     Route: 065

REACTIONS (2)
  - Drug interaction [Unknown]
  - Anticonvulsant drug level decreased [Unknown]
